FAERS Safety Report 14676847 (Version 1)
Quarter: 2018Q1

REPORT INFORMATION
  Report Type: Spontaneous
  Country: US (occurrence: US)
  Receive Date: 20180324
  Receipt Date: 20180324
  Transmission Date: 20180509
  Serious: No
  Sender: FDA-Public Use
  Company Number: PHEH2018US010674

PATIENT
  Sex: Female

DRUGS (1)
  1. TRILEPTAL [Suspect]
     Active Substance: OXCARBAZEPINE
     Indication: AFFECTIVE DISORDER
     Dosage: 1 DF, QD
     Route: 065

REACTIONS (7)
  - Blood sodium decreased [Unknown]
  - Nausea [Unknown]
  - Muscular weakness [Unknown]
  - Lethargy [Unknown]
  - Fatigue [Unknown]
  - Product use in unapproved indication [Unknown]
  - Muscle spasms [Unknown]
